FAERS Safety Report 20002758 (Version 1)
Quarter: 2021Q4

REPORT INFORMATION
  Report Type: Spontaneous
  Country: ES (occurrence: ES)
  Receive Date: 20211028
  Receipt Date: 20211028
  Transmission Date: 20220303
  Serious: Yes (Hospitalization)
  Sender: FDA-Public Use
  Company Number: ES-AEMPS-1022803

PATIENT
  Age: 89 Year
  Sex: Female

DRUGS (6)
  1. HYDROCHLOROTHIAZIDE\LOSARTAN [Suspect]
     Active Substance: HYDROCHLOROTHIAZIDE\LOSARTAN
     Indication: Hypertension
     Dosage: 1.0 COMP C/24 H ()
     Route: 048
     Dates: start: 20170825, end: 20200704
  2. OMEPRAZOL ALMUS 40 mg CAPSULAS DURAS GASTRORRESISTENTES , 28 capsulas [Concomitant]
     Indication: Pharyngitis
     Dosage: 40.0 MG A-DE
     Route: 048
     Dates: start: 20141216
  3. ZOLPIDEM CINFA 10 mg COMPRIMIDOS RECUBIERTOS CON PELICULA EFG , 30 ... [Concomitant]
     Indication: Insomnia
     Dosage: 10.0 MG C/24 H NOC ()
     Route: 048
     Dates: start: 20140505
  4. ELIQUIS [Concomitant]
     Active Substance: APIXABAN
     Indication: Atrial fibrillation
     Dosage: 2.5 MG C/12 H ()
     Route: 048
     Dates: start: 20190816
  5. CARVEDILOL SANDOZ 25 mg COMPRIMIDOS EFG , 28 comprimidos [Concomitant]
     Indication: Hypertension
     Dosage: 12.5 MG A-DECE ()
     Route: 048
     Dates: start: 20100624
  6. DELTIUS 25.000 UI/2,5 ML SOLUCION ORAL , 1 frasco de 2,5 ml [Concomitant]
     Indication: Osteoporosis
     Dosage: 25000.0 UI C/15 DIAS ()
     Route: 048
     Dates: start: 20161029

REACTIONS (1)
  - Acute kidney injury [Recovered/Resolved]

NARRATIVE: CASE EVENT DATE: 20200704
